FAERS Safety Report 25468841 (Version 1)
Quarter: 2025Q2

REPORT INFORMATION
  Report Type: Spontaneous
  Country: US (occurrence: US)
  Receive Date: 20250623
  Receipt Date: 20250623
  Transmission Date: 20250716
  Serious: Yes (Hospitalization)
  Sender: ALKERMES
  Company Number: US-ALKERMES INC.-ALK-2025-001679

PATIENT
  Age: 16 Year
  Sex: Male
  Weight: 55 kg

DRUGS (3)
  1. ARISTADA INITIO [Suspect]
     Active Substance: ARIPIPRAZOLE LAUROXIL
     Indication: Psychotic disorder
     Route: 030
     Dates: start: 20250530, end: 20250530
  2. ABILIFY [Concomitant]
     Active Substance: ARIPIPRAZOLE
     Indication: Product used for unknown indication
     Route: 048
  3. COGENTIN [Concomitant]
     Active Substance: BENZTROPINE MESYLATE
     Indication: Product used for unknown indication
     Route: 065

REACTIONS (4)
  - Psychotic disorder [Unknown]
  - Peripheral swelling [Unknown]
  - Inappropriate schedule of product administration [Unknown]
  - Off label use [Unknown]

NARRATIVE: CASE EVENT DATE: 20250530
